FAERS Safety Report 20682493 (Version 2)
Quarter: 2022Q2

REPORT INFORMATION
  Report Type: Report from Study
  Country: DE (occurrence: DE)
  Receive Date: 20220407
  Receipt Date: 20220414
  Transmission Date: 20220721
  Serious: Yes (Death)
  Sender: FDA-Public Use
  Company Number: DE-ABBVIE-22K-062-4349585-00

PATIENT
  Age: 67 Year
  Sex: Male
  Weight: 81 kg

DRUGS (7)
  1. OMBITASVIR\PARITAPREVIR\RITONAVIR [Suspect]
     Active Substance: OMBITASVIR\PARITAPREVIR\RITONAVIR
     Indication: Chronic hepatitis C
     Route: 048
     Dates: start: 20150617, end: 20150916
  2. RIBAVIRIN [Suspect]
     Active Substance: RIBAVIRIN
     Indication: Chronic hepatitis C
     Route: 048
     Dates: start: 20150617, end: 20150916
  3. DASABUVIR [Suspect]
     Active Substance: DASABUVIR
     Indication: Chronic hepatitis C
     Route: 048
     Dates: start: 20150617, end: 20150916
  4. HUMALOG [Concomitant]
     Active Substance: INSULIN LISPRO
     Indication: Product used for unknown indication
     Dates: start: 20140828
  5. LANTUS [Concomitant]
     Active Substance: INSULIN GLARGINE
     Indication: Product used for unknown indication
     Dates: start: 20140828
  6. LYRICA [Concomitant]
     Active Substance: PREGABALIN
     Indication: Product used for unknown indication
  7. IBUPROFEN [Concomitant]
     Active Substance: IBUPROFEN
     Indication: Product used for unknown indication

REACTIONS (1)
  - Death [Fatal]

NARRATIVE: CASE EVENT DATE: 20220119
